FAERS Safety Report 16476728 (Version 1)
Quarter: 2019Q2

REPORT INFORMATION
  Report Type: Spontaneous
  Country: AU (occurrence: AU)
  Receive Date: 20190626
  Receipt Date: 20190626
  Transmission Date: 20190711
  Serious: Yes (Other)
  Sender: FDA-Public Use
  Company Number: AU-REGENERON PHARMACEUTICALS, INC.-2019-38303

PATIENT

DRUGS (1)
  1. EYLEA [Suspect]
     Active Substance: AFLIBERCEPT
     Indication: PRODUCT USED FOR UNKNOWN INDICATION
     Dosage: TOTAL EYLEA DOSE AND LAST DOSE WERE NOT REPORTED
     Route: 031

REACTIONS (3)
  - Eye haemorrhage [Unknown]
  - Visual impairment [Unknown]
  - Eye disorder [Unknown]
